FAERS Safety Report 18628496 (Version 2)
Quarter: 2021Q1

REPORT INFORMATION
  Report Type: Spontaneous
  Country: CH (occurrence: CH)
  Receive Date: 20201217
  Receipt Date: 20210308
  Transmission Date: 20210419
  Serious: Yes (Other)
  Sender: FDA-Public Use
  Company Number: CH-TEVA-2020-CH-1859937

PATIENT
  Age: 41 Year
  Sex: Female

DRUGS (1)
  1. ESCITALOPRAM?MEPHA 10MG [Suspect]
     Active Substance: ESCITALOPRAM OXALATE
     Indication: DEPRESSIVE SYMPTOM
     Dosage: 10 MILLIGRAM DAILY;
     Route: 048
     Dates: start: 2020, end: 2020

REACTIONS (1)
  - Haematochezia [Recovered/Resolved]

NARRATIVE: CASE EVENT DATE: 2020
